FAERS Safety Report 25606529 (Version 1)
Quarter: 2025Q3

REPORT INFORMATION
  Report Type: Spontaneous
  Country: TH (occurrence: TH)
  Receive Date: 20250725
  Receipt Date: 20250725
  Transmission Date: 20251021
  Serious: Yes (Other)
  Sender: PFIZER
  Company Number: TH-PFIZER INC-PV202500088325

PATIENT
  Age: 76 Year
  Sex: Male

DRUGS (4)
  1. LORLATINIB [Suspect]
     Active Substance: LORLATINIB
     Indication: Non-small cell lung cancer
     Dosage: 100 MG/D
     Dates: start: 20230823
  2. LORLATINIB [Suspect]
     Active Substance: LORLATINIB
     Dosage: 100 MG EOD
  3. LORLATINIB [Suspect]
     Active Substance: LORLATINIB
     Dosage: 75 MG/D
  4. LORLATINIB [Suspect]
     Active Substance: LORLATINIB
     Dosage: 50 MG/D

REACTIONS (7)
  - Hallucination [Unknown]
  - Delirium [Unknown]
  - Anxiety [Unknown]
  - Insomnia [Unknown]
  - Hyperlipidaemia [Not Recovered/Not Resolved]
  - Mass [Unknown]
  - Off label use [Unknown]

NARRATIVE: CASE EVENT DATE: 20230830
